FAERS Safety Report 18395925 (Version 2)
Quarter: 2020Q4

REPORT INFORMATION
  Report Type: Spontaneous
  Country: BG (occurrence: BG)
  Receive Date: 20201018
  Receipt Date: 20201117
  Transmission Date: 20210114
  Serious: Yes (Death, Other)
  Sender: FDA-Public Use
  Company Number: BG-SHIRE-BG202033879

PATIENT

DRUGS (11)
  1. NYSTATIN. [Suspect]
     Active Substance: NYSTATIN
     Indication: ANTIFUNGAL PROPHYLAXIS
     Dosage: UNK
     Route: 065
  2. MYCOPHENOLATE MOFETIL. [Suspect]
     Active Substance: MYCOPHENOLATE MOFETIL
     Indication: IMMUNOSUPPRESSION
     Dosage: 1 MG, BID (STARTED IN THE 1ST POST-LT WEEK)
     Route: 065
  3. RITUXIMAB. [Suspect]
     Active Substance: RITUXIMAB
     Indication: IMMUNE TOLERANCE INDUCTION
     Dosage: 500 MG, 1/WEEK IN THE POSTOPERATIVE PERIOD
     Route: 065
  4. TACROLIMUS. [Suspect]
     Active Substance: TACROLIMUS
     Indication: IMMUNOSUPPRESSION
     Dosage: INITIATED ON A POSTOPERATIVE DAY 1 WITH A STANDARD DOSING REGIMEN TWICE A DAY WITH A TARGET OF 10-12
     Route: 065
  5. AMOXICILLIN/CLAV POT [Suspect]
     Active Substance: AMOXICILLIN\CLAVULANATE POTASSIUM
     Indication: ANTIBIOTIC THERAPY
     Dosage: UNK
     Route: 065
  6. VALGANCICLOVIR. [Suspect]
     Active Substance: VALGANCICLOVIR
     Indication: PRODUCT USED FOR UNKNOWN INDICATION
     Dosage: UNK
     Route: 065
  7. METHYLPREDNISOLONE. [Suspect]
     Active Substance: METHYLPREDNISOLONE
     Indication: IMMUNOSUPPRESSION
     Dosage: 10 MG/KG AFTER REPERFUSION TAPERED FROM 160 MG TO 40 MG OVER 10 DAYS
     Route: 065
  8. PREDNISOLONE. [Suspect]
     Active Substance: PREDNISOLONE
     Indication: IMMUNOSUPPRESSION
     Dosage: 20 MG
     Route: 048
  9. HUMAN NORMAL IMMUNOGLOBULIN [Suspect]
     Active Substance: HUMAN IMMUNOGLOBULIN G
     Indication: IMMUNE TOLERANCE INDUCTION
     Dosage: 0.5 MG/KG PER DAY
     Route: 042
  10. METRONIDAZOLE. [Suspect]
     Active Substance: METRONIDAZOLE
     Indication: ANTIBIOTIC THERAPY
     Dosage: UNK
     Route: 065
  11. CEFOTAXIME [Suspect]
     Active Substance: CEFOTAXIME SODIUM
     Indication: ANTIBIOTIC THERAPY
     Dosage: UNK
     Route: 065

REACTIONS (13)
  - Klebsiella infection [Unknown]
  - Pseudomonas infection [Unknown]
  - Septic shock [Fatal]
  - Procalcitonin increased [Unknown]
  - Haemolytic anaemia [Unknown]
  - Anuria [Fatal]
  - Pancytopenia [Unknown]
  - Post procedural bile leak [Fatal]
  - Abscess [Fatal]
  - C-reactive protein increased [Unknown]
  - Enterococcal infection [Unknown]
  - Bone marrow failure [Unknown]
  - Off label use [Unknown]
